FAERS Safety Report 8265633-3 (Version None)
Quarter: 2012Q2

REPORT INFORMATION
  Report Type: 
  Country: None (occurrence: None)
  Receive Date: 20120406
  Receipt Date: 20120323
  Transmission Date: 20120825
  Serious: Yes (Other)
  Sender: FDA-Public Use
  Company Number: CHPA2012US005701

PATIENT
  Sex: Female

DRUGS (5)
  1. BENEFIBER W/ WHEAT DEXTRIN [Suspect]
     Dosage: 2 TSP, QAM
     Route: 048
     Dates: start: 20110101
  2. ANTIHYPERTENSIVE DRUGS [Concomitant]
     Indication: HYPERTENSION
     Dosage: UNK, UNK
  3. IMITREX [Concomitant]
     Indication: HEADACHE
     Dosage: UNK, UNK
  4. EVISTA [Concomitant]
     Indication: BONE DISORDER
     Dosage: UNK, UNK
  5. BENEFIBER W/ WHEAT DEXTRIN [Suspect]
     Dosage: 1 TSP, QHS
     Route: 048

REACTIONS (2)
  - GASTROINTESTINAL FUNGAL INFECTION [None]
  - UNDERDOSE [None]
